FAERS Safety Report 17501063 (Version 1)
Quarter: 2020Q1

REPORT INFORMATION
  Report Type: Spontaneous
  Country: DE (occurrence: DE)
  Receive Date: 20200305
  Receipt Date: 20200305
  Transmission Date: 20200409
  Serious: Yes (Other)
  Sender: FDA-Public Use
  Company Number: DE-GLAXOSMITHKLINE-DE2020GSK036266

PATIENT
  Age: 78 Year
  Sex: Male
  Weight: 67 kg

DRUGS (1)
  1. CEFUROXIM AXETIL [Suspect]
     Active Substance: CEFUROXIME AXETIL
     Indication: PHARYNGITIS
     Dosage: 2 DF, 1D  (2 DF DOSAGE FORM EVERY DAYS 2 SEPARATED DOSES (2 DOSAGEFORMS,1 D))
     Dates: start: 20190816, end: 20190823

REACTIONS (1)
  - Enterocolitis [Unknown]

NARRATIVE: CASE EVENT DATE: 20191206
